FAERS Safety Report 18122411 (Version 2)
Quarter: 2020Q3

REPORT INFORMATION
  Report Type: Spontaneous
  Country: US (occurrence: US)
  Receive Date: 20200807
  Receipt Date: 20200917
  Transmission Date: 20201103
  Serious: No
  Sender: FDA-Public Use
  Company Number: US-B.I. PHARMACEUTICALS,INC./RIDGEFIELD-2020-US-039292

PATIENT
  Age: 13 Year

DRUGS (1)
  1. SPIRIVA RESPIMAT [Suspect]
     Active Substance: TIOTROPIUM BROMIDE
     Indication: ASTHMA
     Dosage: 2.5 MCG 2 INHALATIONS DAILY
     Dates: start: 20200728

REACTIONS (4)
  - Dyspnoea [Recovered/Resolved]
  - Product quality issue [Not Recovered/Not Resolved]
  - Off label use [Unknown]
  - Cough [Recovered/Resolved]

NARRATIVE: CASE EVENT DATE: 20200728
